FAERS Safety Report 13895395 (Version 1)
Quarter: 2017Q3

REPORT INFORMATION
  Report Type: Spontaneous
  Country: US (occurrence: US)
  Receive Date: 20170818
  Receipt Date: 20170818
  Transmission Date: 20171127
  Serious: Yes (Hospitalization)
  Sender: FDA-Public Use
  Company Number: None

PATIENT
  Age: 18 Year
  Sex: Female
  Weight: 70 kg

DRUGS (1)
  1. JUNEL [Suspect]
     Active Substance: ETHINYL ESTRADIOL\NORETHINDRONE ACETATE
     Indication: SEXUALLY ACTIVE
     Route: 048

REACTIONS (3)
  - Pain in extremity [None]
  - Peripheral swelling [None]
  - Deep vein thrombosis [None]

NARRATIVE: CASE EVENT DATE: 20170814
